FAERS Safety Report 14634916 (Version 1)
Quarter: 2018Q1

REPORT INFORMATION
  Report Type: Spontaneous
  Country: US (occurrence: US)
  Receive Date: 20180314
  Receipt Date: 20180314
  Transmission Date: 20180509
  Serious: No
  Sender: FDA-Public Use
  Company Number: US-009507513-1803USA003898

PATIENT
  Sex: Male

DRUGS (1)
  1. PROVENTIL [Suspect]
     Active Substance: ALBUTEROL
     Dosage: 2 PUFFS TWICE DAILY

REACTIONS (5)
  - Poor quality device used [Unknown]
  - Underdose [Unknown]
  - Product quality issue [Unknown]
  - No adverse event [Unknown]
  - Drug dose omission [Unknown]

NARRATIVE: CASE EVENT DATE: 2018
